FAERS Safety Report 23059158 (Version 4)
Quarter: 2024Q1

REPORT INFORMATION
  Report Type: Report from Study
  Country: JP (occurrence: JP)
  Receive Date: 20231012
  Receipt Date: 20240126
  Transmission Date: 20240409
  Serious: Yes (Death, Hospitalization)
  Sender: FDA-Public Use
  Company Number: JP-INSMED, INC.-2023-03686-JP

PATIENT
  Age: 73 Year
  Sex: Male

DRUGS (2)
  1. ARIKAYCE [Suspect]
     Active Substance: AMIKACIN
     Indication: Product used for unknown indication
     Dosage: UNK
     Route: 055
     Dates: start: 20230920, end: 20231001
  2. ARIKAYCE [Suspect]
     Active Substance: AMIKACIN
     Dosage: UNK
     Route: 055
     Dates: start: 2023

REACTIONS (7)
  - Death [Fatal]
  - Oxygen therapy [Unknown]
  - Productive cough [Unknown]
  - Aphonia [Not Recovered/Not Resolved]
  - Therapy interrupted [Unknown]
  - Incorrect product administration duration [Unknown]
  - Device issue [Unknown]

NARRATIVE: CASE EVENT DATE: 20230901
